FAERS Safety Report 25982593 (Version 1)
Quarter: 2025Q4

REPORT INFORMATION
  Report Type: Spontaneous
  Country: US (occurrence: US)
  Receive Date: 20251031
  Receipt Date: 20251031
  Transmission Date: 20260117
  Serious: No
  Sender: PADAGIS
  Company Number: US-PADAGIS-2025PAD01371

PATIENT

DRUGS (2)
  1. ESTRADIOL VAGINAL [Suspect]
     Active Substance: ESTRADIOL
     Indication: Urinary tract infection
     Dosage: INTERMITTENTLY EVERY 2/3 DAYS WHEN THE BURNING IS NOT RELIEVED BY HER MOISTURIZING ROUTINE
     Route: 065
  2. ESTRADIOL VAGINAL [Suspect]
     Active Substance: ESTRADIOL
     Indication: Vulvovaginal dryness

REACTIONS (5)
  - Vulvovaginal burning sensation [Recovering/Resolving]
  - Vulvovaginal pain [Recovering/Resolving]
  - Drug ineffective for unapproved indication [Unknown]
  - Product use issue [Unknown]
  - Inappropriate schedule of product administration [Unknown]
